FAERS Safety Report 4777184-9 (Version None)
Quarter: 2005Q3

REPORT INFORMATION
  Report Type: 
  Country: None (occurrence: None)
  Receive Date: 20050915
  Receipt Date: 20050530
  Transmission Date: 20060218
  Serious: Yes (Other)
  Sender: FDA-Public Use
  Company Number: 2005RR-00706

PATIENT
  Age: 6 Year
  Sex: Male

DRUGS (2)
  1. OFLOXACIN [Suspect]
     Indication: ULCERATIVE KERATITIS
     Dosage: 0.3%
  2. PREDNISOLONE [Concomitant]

REACTIONS (1)
  - CORNEAL DEPOSITS [None]
